APPROVED DRUG PRODUCT: LOCAMETZ
Active Ingredient: GALLIUM GA-68 GOZETOTIDE
Strength: N/A
Dosage Form/Route: POWDER;INTRAVENOUS
Application: N215841 | Product #001
Applicant: NOVARTIS PHARMACEUTICALS CORP
Approved: Mar 23, 2022 | RLD: Yes | RS: Yes | Type: RX

PATENTS:
Patent 11369590 | Expires: Aug 15, 2028
Patent 12109277 | Expires: Mar 9, 2036